FAERS Safety Report 12942163 (Version 3)
Quarter: 2016Q4

REPORT INFORMATION
  Report Type: Report from Study
  Country: US (occurrence: US)
  Receive Date: 20161114
  Receipt Date: 20161119
  Transmission Date: 20170207
  Serious: Yes (Hospitalization)
  Sender: FDA-Public Use
  Company Number: US-ASTRAZENECA-2016SF17404

PATIENT
  Age: 21614 Day
  Sex: Female

DRUGS (17)
  1. COREG [Concomitant]
     Active Substance: CARVEDILOL
     Indication: CARDIOVASCULAR EVENT PROPHYLAXIS
     Route: 048
     Dates: start: 20150630
  2. GABAPENTIN. [Concomitant]
     Active Substance: GABAPENTIN
     Indication: DIABETIC NEUROPATHY
     Route: 048
     Dates: start: 201603
  3. TORSEMIDE. [Concomitant]
     Active Substance: TORSEMIDE
     Indication: CHRONIC KIDNEY DISEASE
     Dosage: 10.0MG UNKNOWN
     Route: 048
     Dates: start: 20150630
  4. LIPITOR [Suspect]
     Active Substance: ATORVASTATIN CALCIUM
     Indication: HYPERLIPIDAEMIA
     Route: 048
     Dates: start: 201007
  5. PERCOCET [Concomitant]
     Active Substance: ACETAMINOPHEN\OXYCODONE HYDROCHLORIDE
     Indication: BACK PAIN
     Dosage: 1.0DF AS REQUIRED
     Route: 048
     Dates: start: 2012
  6. EPANOVA [Suspect]
     Active Substance: OMEGA-3-CARBOXYLIC ACIDS
     Indication: HYPERTRIGLYCERIDAEMIA
     Route: 048
     Dates: start: 20160713, end: 20161012
  7. WELLBUTRIN [Concomitant]
     Active Substance: BUPROPION HYDROCHLORIDE
     Indication: DEPRESSION
     Route: 048
     Dates: start: 201412
  8. INSULIN GLARGINE [Concomitant]
     Active Substance: INSULIN GLARGINE
     Indication: TYPE 2 DIABETES MELLITUS
     Route: 058
     Dates: start: 201606
  9. LOSARTAN. [Concomitant]
     Active Substance: LOSARTAN
     Indication: HYPERLIPIDAEMIA
     Route: 048
     Dates: start: 201602
  10. WARFARIN [Concomitant]
     Active Substance: WARFARIN
     Indication: DEEP VEIN THROMBOSIS
     Route: 048
     Dates: start: 20160402, end: 20160908
  11. HYDRALAZINE [Concomitant]
     Active Substance: HYDRALAZINE HYDROCHLORIDE
     Indication: HYPERTENSION
     Route: 048
     Dates: start: 20160912
  12. WARFARIN [Concomitant]
     Active Substance: WARFARIN
     Indication: DEEP VEIN THROMBOSIS
     Route: 048
     Dates: start: 20160909
  13. EPANOVA [Suspect]
     Active Substance: OMEGA-3-CARBOXYLIC ACIDS
     Indication: HYPERTRIGLYCERIDAEMIA
     Route: 048
     Dates: start: 20161013, end: 20161024
  14. ASPIRIN. [Concomitant]
     Active Substance: ASPIRIN
     Indication: CARDIOVASCULAR EVENT PROPHYLAXIS
     Route: 048
     Dates: start: 201505
  15. DEPLIN [Concomitant]
     Active Substance: LEVOMEFOLATE CALCIUM
     Indication: DEPRESSION
     Dosage: 15.0MG AS REQUIRED
     Route: 048
     Dates: start: 201601
  16. VENLAFAXIN [Concomitant]
     Active Substance: VENLAFAXINE HYDROCHLORIDE
     Indication: DEPRESSION
     Route: 048
     Dates: start: 201406
  17. HUMALOG [Concomitant]
     Active Substance: INSULIN LISPRO
     Indication: TYPE 2 DIABETES MELLITUS
     Route: 058
     Dates: start: 201606

REACTIONS (3)
  - Nausea [Not Recovered/Not Resolved]
  - Vomiting [Not Recovered/Not Resolved]
  - Hypertension [Not Recovered/Not Resolved]

NARRATIVE: CASE EVENT DATE: 20161019
